FAERS Safety Report 16763034 (Version 1)
Quarter: 2019Q3

REPORT INFORMATION
  Report Type: Spontaneous
  Country: FR (occurrence: FR)
  Receive Date: 20190902
  Receipt Date: 20190902
  Transmission Date: 20191005
  Serious: Yes (Death, Other)
  Sender: FDA-Public Use
  Company Number: FR-SUN PHARMACEUTICAL INDUSTRIES LTD-2019RR-219214

PATIENT
  Sex: Female

DRUGS (2)
  1. VENLAFAXINE [Suspect]
     Active Substance: VENLAFAXINE HYDROCHLORIDE
     Indication: PRODUCT USED FOR UNKNOWN INDICATION
     Dosage: UNK
     Route: 065
  2. DECONTRACTYL (MEPHENESINE\NICOTINATE DE METHYLE\PHENOBARBITAL) [Suspect]
     Active Substance: MEPHENESIN\METHYL NICOTINATE
     Indication: PRODUCT USED FOR UNKNOWN INDICATION
     Dosage: UNK
     Route: 065

REACTIONS (3)
  - Vomiting [Fatal]
  - Drug abuse [Fatal]
  - Asphyxia [Fatal]

NARRATIVE: CASE EVENT DATE: 20190414
